FAERS Safety Report 16131638 (Version 3)
Quarter: 2020Q2

REPORT INFORMATION
  Report Type: Report from Study
  Country: None (occurrence: US)
  Receive Date: 20190329
  Receipt Date: 20200427
  Transmission Date: 20200713
  Serious: Yes (Hospitalization, Other)
  Sender: FDA-Public Use
  Company Number: US-ABBVIE-19K-163-2701657-00

PATIENT
  Sex: Female

DRUGS (3)
  1. HUMIRA [Suspect]
     Active Substance: ADALIMUMAB
     Indication: RHEUMATOID ARTHRITIS
     Route: 058
     Dates: start: 20200410
  2. HUMIRA [Suspect]
     Active Substance: ADALIMUMAB
     Indication: PSORIATIC ARTHROPATHY
     Route: 058
     Dates: start: 20181224, end: 20190204
  3. HUMIRA [Suspect]
     Active Substance: ADALIMUMAB
     Indication: RHEUMATOID ARTHRITIS

REACTIONS (11)
  - Oesophageal ulcer [Recovering/Resolving]
  - Pain in extremity [Unknown]
  - Oesophageal neoplasm [Recovering/Resolving]
  - Chronic obstructive pulmonary disease [Unknown]
  - Loss of personal independence in daily activities [Not Recovered/Not Resolved]
  - Herpes zoster [Recovering/Resolving]
  - Oesophageal food impaction [Recovering/Resolving]
  - Sarcoidosis [Unknown]
  - Rheumatoid arthritis [Unknown]
  - Pneumonia [Recovering/Resolving]
  - Tooth disorder [Unknown]

NARRATIVE: CASE EVENT DATE: 2019
